FAERS Safety Report 8276255-2 (Version None)
Quarter: 2012Q2

REPORT INFORMATION
  Report Type: 
  Country: None (occurrence: None)
  Receive Date: 20120409
  Receipt Date: 20120327
  Transmission Date: 20120825
  Serious: Yes (Other)
  Sender: FDA-Public Use
  Company Number: ACO_29957_2012

PATIENT
  Age: 41 Year
  Sex: Male

DRUGS (2)
  1. FINGOLIMOD (FINGOLIMOD) [Concomitant]
  2. FAMPYRA (DALFAMPRIDINE) TABLET, 10MG [Suspect]
     Indication: GAIT DISTURBANCE
     Dosage: 10 MG, BID, ORAL
     Route: 048
     Dates: start: 20111017, end: 20111106

REACTIONS (1)
  - CONVULSION [None]
